FAERS Safety Report 8505362-1 (Version None)
Quarter: 2012Q3

REPORT INFORMATION
  Report Type: 
  Country: None (occurrence: None)
  Receive Date: 20120712
  Receipt Date: 20120628
  Transmission Date: 20120928
  Serious: Yes (Death)
  Sender: FDA-Public Use
  Company Number: PHHO2012FR009731

PATIENT
  Sex: Male
  Weight: 61.5 kg

DRUGS (6)
  1. CYTARABINE [Suspect]
     Indication: ACUTE MYELOID LEUKAEMIA
     Dosage: 3650 MG, QD
     Route: 042
     Dates: start: 20120522, end: 20120611
  2. CERUBIDINE [Suspect]
     Indication: ACUTE MYELOID LEUKAEMIA
     Dosage: 110 MG, QD
     Route: 042
     Dates: start: 20120522, end: 20120609
  3. AFINITOR [Suspect]
     Indication: ACUTE MYELOID LEUKAEMIA
     Dosage: 70 MG, UNK
     Route: 048
     Dates: start: 20120522, end: 20120528
  4. ONDANSETRON [Concomitant]
     Dosage: 8 MG, QD
     Dates: start: 20120522, end: 20120528
  5. EMEND [Concomitant]
     Dosage: 80 MG, QD
     Route: 048
     Dates: start: 20120522, end: 20120528
  6. GLUCOSE [Concomitant]
     Dosage: 5940 ML, QD
     Route: 042
     Dates: start: 20120522, end: 20120528

REACTIONS (2)
  - HAEMORRHAGIC STROKE [None]
  - THROMBOCYTOPENIA [None]
